FAERS Safety Report 10920067 (Version 1)
Quarter: 2015Q1

REPORT INFORMATION
  Report Type: Spontaneous
  Country: US (occurrence: US)
  Receive Date: 20150317
  Receipt Date: 20150317
  Transmission Date: 20150721
  Serious: No
  Sender: FDA-Public Use
  Company Number: US-TEVA-544086USA

PATIENT
  Sex: Female

DRUGS (1)
  1. AMLODIPINE/VALSARTAN/HYDROCHLOROTHIAZIDE [Suspect]
     Active Substance: AMLODIPINE\HYDROCHLOROTHIAZIDE\VALSARTAN
     Indication: HYPERTENSION
     Dosage: 5 MG / 160 MG / 12.5 MG
     Route: 048
     Dates: start: 20150201

REACTIONS (3)
  - Vomiting [Unknown]
  - Product substitution issue [Unknown]
  - Product size issue [Unknown]
